FAERS Safety Report 25139076 (Version 3)
Quarter: 2025Q2

REPORT INFORMATION
  Report Type: Spontaneous
  Country: MX (occurrence: MX)
  Receive Date: 20250331
  Receipt Date: 20250612
  Transmission Date: 20250716
  Serious: Yes (Other)
  Sender: ORGANON
  Company Number: MX-ORGANON-O2503MEX002522

PATIENT
  Sex: Female

DRUGS (1)
  1. ETONOGESTREL [Suspect]
     Active Substance: ETONOGESTREL
     Route: 059
     Dates: start: 20210331, end: 20250327

REACTIONS (4)
  - Device embolisation [Recovered/Resolved]
  - Dyspnoea exertional [Recovered/Resolved]
  - Haemoptysis [Recovered/Resolved]
  - Incorrect product administration duration [Unknown]

NARRATIVE: CASE EVENT DATE: 20240331
